FAERS Safety Report 4704330-5 (Version None)
Quarter: 2005Q2

REPORT INFORMATION
  Report Type: 
  Country: None (occurrence: None)
  Receive Date: 20050628
  Receipt Date: 20050615
  Transmission Date: 20051028
  Serious: Yes (Hospitalization)
  Sender: FDA-Public Use
  Company Number: 2005088986

PATIENT
  Age: 76 Year
  Sex: Female

DRUGS (7)
  1. ZYVOX [Suspect]
     Indication: STAPHYLOCOCCAL SEPSIS
     Dosage: 600 MG (BID) INTRAVENOUS
     Route: 042
     Dates: start: 20050429, end: 20050505
  2. CARDIOASPIRIN (ACETYLSALICYLIC ACID) [Concomitant]
  3. MODURETIC 5-50 [Concomitant]
  4. SEREVENT [Concomitant]
  5. LASIX [Concomitant]
  6. DELTACORTENE (PREDNISONE) [Concomitant]
  7. OMEPRAZOLE [Concomitant]

REACTIONS (1)
  - RENAL FAILURE ACUTE [None]
